FAERS Safety Report 5367363-4 (Version None)
Quarter: 2007Q2

REPORT INFORMATION
  Report Type: 
  Country: None (occurrence: None)
  Receive Date: 20070622
  Receipt Date: 20060921
  Transmission Date: 20071010
  Serious: No
  Sender: FDA-Public Use
  Company Number: US-ASTRAZENECA-2006UW18485

PATIENT
  Sex: Female

DRUGS (1)
  1. PULMICORT [Suspect]
     Dosage: 200 DOSES/UNIT
     Route: 055

REACTIONS (1)
  - MEDICAL DEVICE COMPLICATION [None]
